FAERS Safety Report 5689860-4 (Version None)
Quarter: 2008Q1

REPORT INFORMATION
  Report Type: 
  Country: None (occurrence: None)
  Receive Date: 20080331
  Receipt Date: 20080331
  Transmission Date: 20080703
  Serious: Yes (Life-Threatening)
  Sender: FDA-Public Use
  Company Number: None

PATIENT
  Age: 20 Year
  Sex: Female

DRUGS (1)
  1. GEODON [Suspect]
     Dosage: 10 MG ONCE IV BOLUS ONE DOSE
     Route: 040

REACTIONS (8)
  - ELECTROCARDIOGRAM QT PROLONGED [None]
  - HYPOVENTILATION [None]
  - INCORRECT ROUTE OF DRUG ADMINISTRATION [None]
  - PROCEDURAL NAUSEA [None]
  - RESPIRATORY RATE DECREASED [None]
  - SEDATION [None]
  - SINUS BRADYCARDIA [None]
  - UNRESPONSIVE TO STIMULI [None]
